FAERS Safety Report 17473585 (Version 2)
Quarter: 2020Q4

REPORT INFORMATION
  Report Type: Report from Study
  Country: BR (occurrence: BR)
  Receive Date: 20200228
  Receipt Date: 20201116
  Transmission Date: 20210113
  Serious: Yes (Other)
  Sender: FDA-Public Use
  Company Number: BR-JNJFOC-20190741748

PATIENT
  Age: 43 Year
  Sex: Male

DRUGS (3)
  1. METHOTREXATE. [Concomitant]
     Active Substance: METHOTREXATE
  2. NAPROXEN. [Concomitant]
     Active Substance: NAPROXEN
  3. SIMPONI [Suspect]
     Active Substance: GOLIMUMAB
     Indication: PSORIATIC ARTHROPATHY
     Route: 058

REACTIONS (2)
  - Dandruff [Not Recovered/Not Resolved]
  - Pneumonia [Unknown]

NARRATIVE: CASE EVENT DATE: 201902
